FAERS Safety Report 5186361-7 (Version None)
Quarter: 2006Q4

REPORT INFORMATION
  Report Type: 
  Country: None (occurrence: None)
  Receive Date: 20061220
  Receipt Date: 20061129
  Transmission Date: 20070319
  Serious: Yes (Other)
  Sender: FDA-Public Use
  Company Number: US-ELI_LILLY_AND_COMPANY-US200612000046

PATIENT
  Age: 15 Year
  Sex: Male

DRUGS (1)
  1. HUMATROPE [Suspect]
     Indication: GROWTH RETARDATION
     Dosage: 0.37 MG/KG, WEEKLY (1/W)
     Dates: start: 20050415

REACTIONS (3)
  - EYE INJURY [None]
  - RETINAL DETACHMENT [None]
  - SCLERAL DISCOLOURATION [None]
